FAERS Safety Report 7661855-0 (Version None)
Quarter: 2011Q3

REPORT INFORMATION
  Report Type: 
  Country: None (occurrence: None)
  Receive Date: 20110805
  Receipt Date: 20110802
  Transmission Date: 20111222
  Serious: Yes (Death, Other)
  Sender: FDA-Public Use
  Company Number: JP-CELGENEUS-087-50794-11080593

PATIENT
  Age: 71 Year
  Sex: Male

DRUGS (10)
  1. ALLOPURINOL [Concomitant]
     Route: 065
  2. DAUNORUBICIN HCL [Concomitant]
     Route: 065
     Dates: start: 20110101
  3. MIYA BM [Concomitant]
     Route: 065
  4. VIDAZA [Suspect]
     Dosage: 75 MILLIGRAM/SQ. METER
     Route: 041
     Dates: start: 20110627, end: 20110630
  5. LANSOPRAZOLE [Concomitant]
     Route: 065
  6. OXYCONTIN [Concomitant]
     Route: 065
     Dates: start: 20110627, end: 20110630
  7. GRANISETRON [Concomitant]
     Route: 065
     Dates: start: 20110627, end: 20110630
  8. PASIL [Concomitant]
     Route: 065
  9. CYTARABINE [Concomitant]
     Route: 065
     Dates: start: 20110101
  10. FUROSEMIDE [Concomitant]
     Route: 065

REACTIONS (2)
  - PNEUMONIA [None]
  - PLATELET COUNT DECREASED [None]
